FAERS Safety Report 10978357 (Version 1)
Quarter: 2015Q1

REPORT INFORMATION
  Report Type: Spontaneous
  Country: CH (occurrence: None)
  Receive Date: 20150331
  Receipt Date: 20150331
  Transmission Date: 20150721
  Serious: Yes (Hospitalization)
  Sender: FDA-Public Use
  Company Number: CH-2015VAL000221

PATIENT
  Age: 63 Year
  Sex: Female

DRUGS (10)
  1. ROCALTROL [Suspect]
     Active Substance: CALCITRIOL
     Indication: HYPOPARATHYROIDISM
     Route: 048
     Dates: start: 201104, end: 201408
  2. LEXOTANIL (BROMAZEPAM) TABLET [Concomitant]
  3. LIVIAL (TIBOLONE) [Concomitant]
  4. GABAPENTIN (GABAPENTIN) [Concomitant]
     Active Substance: GABAPENTIN
  5. BILAXTEN (BILASTINE) [Concomitant]
  6. DEXERYL /00557601/ (CHLORPHENAMINE MALEATE, DEXTROMETHORPHAN HYDROBROMIDE, GUAIFENESIN, PHENYLEPHRINE HYDROCHLORIDE) [Concomitant]
  7. CALCIMAGON-D3 [Suspect]
     Active Substance: CALCIUM\CHOLECALCIFEROL
     Indication: HYPOPARATHYROIDISM
     Route: 048
     Dates: start: 201104, end: 201408
  8. RILUTEK (RILUZOLE) [Concomitant]
  9. LIORESAL [Concomitant]
     Active Substance: BACLOFEN
  10. XYZAL (LEVOCETIRIZINE DIHYDROCHLORIDE) [Concomitant]

REACTIONS (9)
  - Acute kidney injury [None]
  - Vision blurred [None]
  - Muscular weakness [None]
  - Polyuria [None]
  - Dizziness [None]
  - Hyperkalaemia [None]
  - Hypercalcaemia [None]
  - Fluid intake reduced [None]
  - Speech disorder [None]

NARRATIVE: CASE EVENT DATE: 201408
